FAERS Safety Report 18509503 (Version 8)
Quarter: 2021Q3

REPORT INFORMATION
  Report Type: Spontaneous
  Country: US (occurrence: US)
  Receive Date: 20201117
  Receipt Date: 20210830
  Transmission Date: 20211014
  Serious: Yes (Hospitalization, Other)
  Sender: FDA-Public Use
  Company Number: US-SA-2020SA316697

PATIENT
  Age: 64 Year
  Sex: Female

DRUGS (19)
  1. ANASTROZOLE. [Concomitant]
     Active Substance: ANASTROZOLE
  2. CYTOXAN [Concomitant]
     Active Substance: CYCLOPHOSPHAMIDE
  3. ZANTAC [Suspect]
     Active Substance: RANITIDINE HYDROCHLORIDE
     Dosage: 150 MG, QD
     Route: 048
     Dates: start: 20180215, end: 20180615
  4. BUPIVACAINE. [Concomitant]
     Active Substance: BUPIVACAINE
  5. EPHEDRINE. [Concomitant]
     Active Substance: EPHEDRINE
  6. FENTANYL. [Concomitant]
     Active Substance: FENTANYL
  7. DEXAMETHASONE PHOSPHATE [Concomitant]
     Active Substance: DEXAMETHASONE PHOSPHATE
  8. XYLOCAINE [Concomitant]
     Active Substance: LIDOCAINE HYDROCHLORIDE
     Dosage: UNK
  9. HYDROCODONE BITARTRATE AND ACETAMINOPHEN [Concomitant]
     Active Substance: ACETAMINOPHEN\HYDROCODONE BITARTRATE
  10. PROPOFOL. [Concomitant]
     Active Substance: PROPOFOL
  11. PHENYLEPHRINE HCL [Concomitant]
     Active Substance: PHENYLEPHRINE HYDROCHLORIDE
  12. ZANTAC [Suspect]
     Active Substance: RANITIDINE HYDROCHLORIDE
     Dosage: 150 MG, HS
     Route: 048
     Dates: start: 20160407, end: 20160805
  13. MIDAZOLAM. [Concomitant]
     Active Substance: MIDAZOLAM
  14. FAMOTIDINE. [Concomitant]
     Active Substance: FAMOTIDINE
  15. ALBUTEROL;IPRATROPIUM [Concomitant]
     Active Substance: ALBUTEROL\IPRATROPIUM
  16. CEFAZOLIN [Concomitant]
     Active Substance: CEFAZOLIN
  17. DEXTROSE. [Concomitant]
     Active Substance: DEXTROSE
  18. TAXOTERE [Concomitant]
     Active Substance: DOCETAXEL
  19. ALBUTEROL [SALBUTAMOL] [Concomitant]
     Active Substance: ALBUTEROL

REACTIONS (8)
  - Dyslipidaemia [Unknown]
  - Breast cancer stage II [Unknown]
  - Pain [Unknown]
  - Breast mass [Unknown]
  - Gastrooesophageal reflux disease [Unknown]
  - Hospitalisation [Unknown]
  - Breast tenderness [Unknown]
  - Product storage error [Unknown]

NARRATIVE: CASE EVENT DATE: 202004
